FAERS Safety Report 24854606 (Version 1)
Quarter: 2025Q1

REPORT INFORMATION
  Report Type: Spontaneous
  Country: US (occurrence: US)
  Receive Date: 20250117
  Receipt Date: 20250117
  Transmission Date: 20250408
  Serious: No
  Sender: CURRAX PHARMACEUTICALS
  Company Number: US-CURRAX PHARMACEUTICALS-2020-011156

PATIENT
  Age: 57 Year
  Sex: Female

DRUGS (3)
  1. CONTRAVE [Suspect]
     Active Substance: BUPROPION HYDROCHLORIDE\NALTREXONE HYDROCHLORIDE
     Indication: Weight control
     Route: 048
     Dates: start: 20200912, end: 20200918
  2. SYNTHROID [Concomitant]
     Active Substance: LEVOTHYROXINE SODIUM
     Indication: Product used for unknown indication
  3. DEXILANT [Concomitant]
     Active Substance: DEXLANSOPRAZOLE
     Indication: Gastrooesophageal reflux disease

REACTIONS (7)
  - Chest discomfort [Unknown]
  - Panic attack [Unknown]
  - Food aversion [Unknown]
  - Brain fog [Unknown]
  - Anxiety [Unknown]
  - Insomnia [Unknown]
  - Middle insomnia [Unknown]

NARRATIVE: CASE EVENT DATE: 20200901
